FAERS Safety Report 9885175 (Version 2)
Quarter: 2014Q1

REPORT INFORMATION
  Report Type: Report from Study
  Country: US (occurrence: US)
  Receive Date: 20140210
  Receipt Date: 20140225
  Transmission Date: 20141002
  Serious: Yes (Hospitalization, Other)
  Sender: FDA-Public Use
  Company Number: US-PURDUE-USA-2014-0110939

PATIENT
  Sex: Female

DRUGS (2)
  1. OXY CR TAB [Suspect]
     Indication: OSTEOARTHRITIS
     Dosage: UNK
     Route: 048
     Dates: start: 1995
  2. OXY CR TAB [Suspect]
     Dosage: 160 MG, BID
     Route: 048
     Dates: start: 20131213, end: 20140112

REACTIONS (3)
  - Cardio-respiratory arrest [Recovered/Resolved]
  - Cardiac failure congestive [Unknown]
  - Cardiomegaly [Recovered/Resolved]
